FAERS Safety Report 13293033 (Version 2)
Quarter: 2017Q3

REPORT INFORMATION
  Report Type: Spontaneous
  Country: US (occurrence: US)
  Receive Date: 20170303
  Receipt Date: 20170707
  Transmission Date: 20171127
  Serious: Yes (Hospitalization, Other)
  Sender: FDA-Public Use
  Company Number: US-JNJFOC-20170102914

PATIENT
  Age: 66 Year
  Sex: Male

DRUGS (7)
  1. XARELTO [Suspect]
     Active Substance: RIVAROXABAN
     Indication: PULMONARY EMBOLISM
     Route: 048
     Dates: start: 201411, end: 201504
  2. XARELTO [Suspect]
     Active Substance: RIVAROXABAN
     Indication: DEEP VEIN THROMBOSIS
     Dosage: 20 MG EVERY 48 HOURS AND 15MG TWICE A DAY FOR 10 DAYS.
     Route: 048
     Dates: start: 201412, end: 201504
  3. XARELTO [Suspect]
     Active Substance: RIVAROXABAN
     Indication: PULMONARY EMBOLISM
     Dosage: 20 MG EVERY 48 HOURS AND 15MG TWICE A DAY FOR 10 DAYS.
     Route: 048
     Dates: start: 201412, end: 201504
  4. XARELTO [Suspect]
     Active Substance: RIVAROXABAN
     Indication: DEEP VEIN THROMBOSIS
     Route: 048
     Dates: start: 201411, end: 201504
  5. XARELTO [Suspect]
     Active Substance: RIVAROXABAN
     Indication: DEEP VEIN THROMBOSIS
     Dosage: 15 MG TWICE A DAY FOR 10 DAYS, 20 MG/ DAY
     Route: 048
     Dates: start: 201411, end: 201411
  6. XARELTO [Suspect]
     Active Substance: RIVAROXABAN
     Indication: PULMONARY EMBOLISM
     Dosage: 15 MG TWICE A DAY FOR 10 DAYS, 20 MG/ DAY
     Route: 048
     Dates: start: 201411, end: 201411
  7. HEPARIN SODIUM. [Suspect]
     Active Substance: HEPARIN SODIUM
     Indication: PRODUCT USED FOR UNKNOWN INDICATION
     Dosage: 500 UNIT EVERY 8 HOURS, 500 UNIT EVERY 12 HOURS
     Route: 042

REACTIONS (4)
  - Off label use [Unknown]
  - Cerebral haemorrhage [Unknown]
  - Gastrointestinal polyp haemorrhage [Recovering/Resolving]
  - Inappropriate schedule of drug administration [Unknown]

NARRATIVE: CASE EVENT DATE: 201412
